FAERS Safety Report 16726044 (Version 1)
Quarter: 2019Q3

REPORT INFORMATION
  Report Type: Spontaneous
  Country: CA (occurrence: CA)
  Receive Date: 20190821
  Receipt Date: 20190821
  Transmission Date: 20191005
  Serious: Yes (Other)
  Sender: FDA-Public Use
  Company Number: CA-TEVA-2019-CA-1095212

PATIENT
  Age: 71 Year
  Sex: Female

DRUGS (5)
  1. APO-ATORVASTATIN [Suspect]
     Active Substance: ATORVASTATIN
     Indication: PRODUCT USED FOR UNKNOWN INDICATION
     Dosage: 10 MILLIGRAM DAILY;
     Route: 065
  2. ENBREL [Suspect]
     Active Substance: ETANERCEPT
     Indication: PRODUCT USED FOR UNKNOWN INDICATION
     Route: 065
  3. METHOTREXATE. [Suspect]
     Active Substance: METHOTREXATE
     Indication: RHEUMATOID ARTHRITIS
     Route: 065
  4. XELJANZ [Suspect]
     Active Substance: TOFACITINIB CITRATE
     Indication: RHEUMATOID ARTHRITIS
     Dosage: 10 MILLIGRAM DAILY;
     Route: 048
  5. FOLINIC ACID [Suspect]
     Active Substance: LEUCOVORIN
     Indication: RHEUMATOID ARTHRITIS
     Route: 065

REACTIONS (8)
  - Arthralgia [Unknown]
  - Foot deformity [Unknown]
  - Drug ineffective [Unknown]
  - Peripheral swelling [Unknown]
  - Ankle deformity [Unknown]
  - Pain [Unknown]
  - Carpal tunnel syndrome [Unknown]
  - Hypersensitivity [Unknown]
